FAERS Safety Report 7645231-2 (Version None)
Quarter: 2011Q3

REPORT INFORMATION
  Report Type: 
  Country: None (occurrence: None)
  Receive Date: 20110729
  Receipt Date: 20110721
  Transmission Date: 20111222
  Serious: Yes (Disabling)
  Sender: FDA-Public Use
  Company Number: US-MERCK-1104USA01786

PATIENT
  Age: 87 Year
  Sex: Female

DRUGS (6)
  1. STATIN (UNSPECIFIED) [Concomitant]
     Route: 065
  2. HYZAAR [Suspect]
     Route: 048
     Dates: end: 20110101
  3. CITALOPRAM [Concomitant]
     Route: 065
  4. PROTONA [Concomitant]
     Route: 065
  5. HYZAAR [Suspect]
     Route: 048
     Dates: start: 20110101
  6. HYZAAR [Suspect]
     Indication: HYPERTENSION
     Route: 048
     Dates: start: 20110214, end: 20110201

REACTIONS (9)
  - DIZZINESS [None]
  - DYSGEUSIA [None]
  - HEADACHE [None]
  - MOVEMENT DISORDER [None]
  - SOMNOLENCE [None]
  - BLOOD PRESSURE INADEQUATELY CONTROLLED [None]
  - BALANCE DISORDER [None]
  - ANHEDONIA [None]
  - INSOMNIA [None]
